FAERS Safety Report 6815951-8 (Version None)
Quarter: 2010Q3

REPORT INFORMATION
  Report Type: 
  Country: None (occurrence: None)
  Receive Date: 20100705
  Receipt Date: 20100624
  Transmission Date: 20110219
  Serious: No
  Sender: FDA-Public Use
  Company Number: US-BIOGENIDEC-2010BI021979

PATIENT
  Age: 31 Year
  Sex: Female

DRUGS (1)
  1. TYSABRI [Suspect]
     Indication: MULTIPLE SCLEROSIS
     Route: 042
     Dates: start: 20100621

REACTIONS (9)
  - DECREASED APPETITE [None]
  - DEHYDRATION [None]
  - DYSGEUSIA [None]
  - FATIGUE [None]
  - HEADACHE [None]
  - NAUSEA [None]
  - THIRST DECREASED [None]
  - VOMITING [None]
  - WEIGHT DECREASED [None]
